FAERS Safety Report 17849095 (Version 1)
Quarter: 2020Q2

REPORT INFORMATION
  Report Type: Spontaneous
  Country: CA (occurrence: CA)
  Receive Date: 20200602
  Receipt Date: 20200602
  Transmission Date: 20200714
  Serious: Yes (Other)
  Sender: FDA-Public Use
  Company Number: CA-TEVA-2020-CA-1242222

PATIENT
  Age: 60 Year
  Sex: Male

DRUGS (2)
  1. CARBAMAZEPINE. [Suspect]
     Active Substance: CARBAMAZEPINE
     Indication: VAGUS NERVE DISORDER
     Dosage: 200 MILLIGRAM DAILY;
     Route: 065
  2. CARBAMAZEPINE. [Suspect]
     Active Substance: CARBAMAZEPINE
     Indication: COUGH
     Dosage: 400 MILLIGRAM DAILY;
     Route: 065

REACTIONS (4)
  - Cognitive disorder [Recovered/Resolved]
  - Depressive symptom [Recovered/Resolved]
  - Affect lability [Recovered/Resolved]
  - Suicidal ideation [Recovered/Resolved]
